FAERS Safety Report 4528710-6 (Version None)
Quarter: 2005Q1

REPORT INFORMATION
  Report Type: 
  Country: None (occurrence: None)
  Receive Date: 20041202
  Receipt Date: 20040818
  Transmission Date: 20050727
  Serious: No
  Sender: FDA-Public Use
  Company Number: 200419102BWH

PATIENT
  Age: 50 Year
  Sex: Male
  Weight: 79.3795 kg

DRUGS (6)
  1. LEVITRA [Suspect]
     Indication: ERECTILE DYSFUNCTION
     Dosage: 10 MG, PRN, ORAL; SEE IMAGE
     Route: 048
     Dates: start: 20040601
  2. LEVITRA [Suspect]
     Indication: ERECTILE DYSFUNCTION
     Dosage: 10 MG, PRN, ORAL; SEE IMAGE
     Route: 048
     Dates: start: 20040701
  3. LEVITRA [Suspect]
     Indication: ERECTILE DYSFUNCTION
     Dosage: 10 MG, PRN, ORAL; SEE IMAGE
     Route: 048
     Dates: start: 20040701
  4. CIALIS [Concomitant]
  5. WELLBUTRIN [Concomitant]
  6. ALPRAZOLAM [Concomitant]

REACTIONS (2)
  - ERECTILE DYSFUNCTION [None]
  - NASAL CONGESTION [None]
